FAERS Safety Report 7088553-9 (Version None)
Quarter: 2010Q4

REPORT INFORMATION
  Report Type: 
  Country: None (occurrence: None)
  Receive Date: 20101028
  Receipt Date: 20101015
  Transmission Date: 20110411
  Serious: Yes (Death, Hospitalization)
  Sender: FDA-Public Use
  Company Number: UTC-001480

PATIENT
  Age: 81 Year
  Sex: Female
  Weight: 57.6 kg

DRUGS (13)
  1. TYVASO [Suspect]
     Dosage: 48 MCG (12 MCG,4 IN 1 D),INHALATION
     Route: 055
     Dates: start: 20100313
  2. LASIX [Concomitant]
  3. PREDNISONE [Concomitant]
  4. RANITIDINE [Concomitant]
  5. ALBUTEROL [Concomitant]
  6. ADVAIR DISKUS 100/50 [Concomitant]
  7. MICARDIS [Concomitant]
  8. SPIRIVA [Concomitant]
  9. MIRALAX [Concomitant]
  10. COLACE (DOCUSATE SODIUM) [Concomitant]
  11. PERCOCET [Concomitant]
  12. ASPIRIN [Concomitant]
  13. ADCIRCA (TADALAFIL) [Concomitant]

REACTIONS (2)
  - HYPOTENSION [None]
  - INTESTINAL OBSTRUCTION [None]
